FAERS Safety Report 11067596 (Version 1)
Quarter: 2015Q2

REPORT INFORMATION
  Report Type: Spontaneous
  Country: US (occurrence: None)
  Receive Date: 20150424
  Receipt Date: 20150424
  Transmission Date: 20150821
  Serious: Yes (Hospitalization)
  Sender: FDA-Public Use
  Company Number: None

PATIENT
  Sex: Male

DRUGS (21)
  1. AMLODOPINE [Concomitant]
  2. OXYCODONE [Concomitant]
     Active Substance: OXYCODONE
  3. PANTOPRAZOLE (PROTONIX) [Concomitant]
  4. CALCITROIL (CALCIJEX) [Concomitant]
  5. RIBAVIRIN (COPEGUS) [Concomitant]
  6. ERGOCALCIFEROL. [Concomitant]
     Active Substance: ERGOCALCIFEROL
  7. LEVOCETIRIZINE (XYZAL) [Concomitant]
  8. COPEGUS [Suspect]
     Active Substance: RIBAVIRIN
     Indication: HEPATITIS C
     Route: 048
     Dates: start: 20150121
  9. PENTOXIFYLLINE (TRENTAL) [Concomitant]
  10. TORSEMIDE (DEMADEX) [Concomitant]
  11. CALCIUM ACETATE. [Concomitant]
     Active Substance: CALCIUM ACETATE
  12. LOSARTAN (COZAAR) [Concomitant]
  13. PREDNISONE (DELTASONE) [Concomitant]
  14. BIOTIN (NEPHRO-VITE/RENA-VITE RX) [Concomitant]
  15. DARBEPOETIN ALFA (ARANEST) [Concomitant]
  16. OMBITA-PARITAP-RITON-DASEBUVIR (VIEKIRA PAK) [Concomitant]
  17. VIEKIRA PAK [Suspect]
     Active Substance: DASABUVIR\OMBITASVIR\PARITAPREVIR\RITONAVIR
     Indication: HEPATITIS C
     Dosage: VIEKIRA PAK 3 TABS, BID, PO
     Route: 048
     Dates: start: 20150121
  18. GLIPIZIDE. [Concomitant]
     Active Substance: GLIPIZIDE
  19. OXYCODONE (ROXICODONE) [Concomitant]
  20. INSULIN GLARGIN (LANTUS) [Concomitant]
  21. CARVEDILOL (COREG) [Concomitant]

REACTIONS (8)
  - Catheter site pain [None]
  - Tricuspid valve incompetence [None]
  - Drug dose omission [None]
  - Extremity necrosis [None]
  - Staphylococcal bacteraemia [None]
  - Treatment noncompliance [None]
  - Endocarditis [None]
  - Hyperkalaemia [None]

NARRATIVE: CASE EVENT DATE: 20150404
